FAERS Safety Report 7386266-7 (Version None)
Quarter: 2011Q1

REPORT INFORMATION
  Report Type: 
  Country: None (occurrence: None)
  Receive Date: 20110323
  Receipt Date: 20110309
  Transmission Date: 20110831
  Serious: Yes (Other)
  Sender: FDA-Public Use
  Company Number: 021933

PATIENT
  Age: 37 Year
  Sex: Female

DRUGS (3)
  1. LACOSAMIDE [Suspect]
     Indication: EPILEPSY
     Dosage: (), 200 MG QD,
  2. PHENYTOIN [Suspect]
     Indication: EPILEPSY
     Dosage: 375 MG, 325 MG, QD,
  3. LAMOTRIGINE [Suspect]
     Indication: EPILEPSY
     Dosage: 500 MG, 450 MG QD;

REACTIONS (6)
  - DIPLOPIA [None]
  - DRUG INTERACTION [None]
  - NEUROTOXICITY [None]
  - DRUG LEVEL ABOVE THERAPEUTIC [None]
  - GAIT DISTURBANCE [None]
  - DRUG LEVEL BELOW THERAPEUTIC [None]
